FAERS Safety Report 5225338-X (Version None)
Quarter: 2007Q1

REPORT INFORMATION
  Report Type: 
  Country: None (occurrence: None)
  Receive Date: 20070131
  Receipt Date: 20070118
  Transmission Date: 20070707
  Serious: Yes (Hospitalization)
  Sender: FDA-Public Use
  Company Number: US-ELI_LILLY_AND_COMPANY-US200612004518

PATIENT
  Age: 84 Year
  Sex: Female

DRUGS (19)
  1. FORTEO [Suspect]
     Indication: OSTEOPOROSIS
     Dosage: 20 UG, UNK
     Dates: start: 20061001
  2. LEXAPRO                                 /USA/ [Concomitant]
     Dosage: 20 UNK, EACH EVENING
     Dates: start: 20070117
  3. TRAZODONE HCL [Concomitant]
     Dosage: 150 MG, EACH EVENING
     Dates: start: 20070110
  4. TRAMADOL HCL [Concomitant]
     Dosage: 50 MG, AS NEEDED
     Dates: start: 20070104
  5. MICROKALEORID [Concomitant]
     Dosage: 10 MEQ, 2/D
     Dates: start: 20070104
  6. LEVOTHROID [Concomitant]
     Dosage: 125 UNK, DAILY (1/D)
     Dates: start: 20070104
  7. FUROSEMIDE [Concomitant]
     Dosage: 40 MG, UNK
     Dates: start: 20070104
  8. AMIODARONE HCL [Concomitant]
     Dosage: 200 MG, DAILY (1/D)
     Dates: start: 20070104
  9. ADVAIR DISKUS 100/50 [Concomitant]
     Dosage: UNK, 4/D
     Dates: start: 20060808
  10. ULTRAM [Concomitant]
     Dosage: 200 MG, DAILY (1/D)
     Dates: start: 20060720
  11. MVI                                     /USA/ [Concomitant]
     Dosage: UNK, DAILY (1/D)
     Dates: start: 20050923
  12. MEDROL [Concomitant]
     Dosage: 4 MG, DAILY (1/D)
     Dates: start: 20050923
  13. ALBUTEROL [Concomitant]
     Dosage: 2 UNK, EVERY 4 HRS
     Route: 055
     Dates: start: 20050923
  14. TOPAMAX                                 /AUS/ [Concomitant]
     Dosage: 25 MG, DAILY (1/D)
     Dates: start: 20050405
  15. FLONASE [Concomitant]
     Dosage: 2 UNK, DAILY (1/D)
     Route: 055
     Dates: start: 20041019
  16. CLARINEX /DEN/ [Concomitant]
     Dosage: 10 MG, DAILY (1/D)
     Dates: start: 20041019
  17. XOPENEX [Concomitant]
     Dosage: 0.125 UNK, 2/D
     Route: 055
     Dates: start: 20030822
  18. XALATAN                                 /SWE/ [Concomitant]
     Dosage: 0.005 %, EACH EVENING
     Dates: start: 20030822
  19. ATROVENT [Concomitant]
     Dosage: 0.02 %, EVERY 6 HRS
     Route: 055
     Dates: start: 20030822

REACTIONS (3)
  - ASTHENIA [None]
  - ASTHMA [None]
  - PNEUMONIA [None]
